FAERS Safety Report 13035123 (Version 1)
Quarter: 2016Q4

REPORT INFORMATION
  Report Type: Spontaneous
  Country: FR (occurrence: FR)
  Receive Date: 20161216
  Receipt Date: 20161216
  Transmission Date: 20170207
  Serious: Yes (Disabling)
  Sender: FDA-Public Use
  Company Number: FR-PFIZER INC-2016573920

PATIENT
  Age: 26 Year
  Sex: Female

DRUGS (5)
  1. PREDNISONE. [Suspect]
     Active Substance: PREDNISONE
     Indication: MONONEURITIS
     Dosage: 8 MG, 1X/DAY
     Route: 048
     Dates: start: 201512
  2. LYRICA [Suspect]
     Active Substance: PREGABALIN
     Dosage: UNK
     Route: 048
     Dates: start: 201601
  3. ENDOXAN /00021101/ [Suspect]
     Active Substance: CYCLOPHOSPHAMIDE
     Indication: MONONEURITIS
     Dosage: 3 COURSES IN TOTAL
     Route: 042
     Dates: start: 201512, end: 201602
  4. IMUREL /00001501/ [Suspect]
     Active Substance: AZATHIOPRINE SODIUM
     Indication: MONONEURITIS
     Dosage: 2 MG, 1X/DAY
     Route: 048
     Dates: start: 201603
  5. PLAQUENIL /00072602/ [Suspect]
     Active Substance: HYDROXYCHLOROQUINE DIPHOSPHATE
     Indication: SJOGREN^S SYNDROME
     Dosage: UNK
     Route: 048
     Dates: start: 201505

REACTIONS (2)
  - Ejection fraction decreased [Not Recovered/Not Resolved]
  - Hypertrophic cardiomyopathy [Not Recovered/Not Resolved]

NARRATIVE: CASE EVENT DATE: 201610
